FAERS Safety Report 6022537-4 (Version None)
Quarter: 2008Q4

REPORT INFORMATION
  Report Type: 
  Country: None (occurrence: None)
  Receive Date: 20081230
  Receipt Date: 20081219
  Transmission Date: 20090506
  Serious: Yes (Other)
  Sender: FDA-Public Use
  Company Number: PHHY2008JP31759

PATIENT
  Age: 66 Year
  Sex: Male

DRUGS (5)
  1. NEORAL [Suspect]
     Indication: DERMATITIS ATOPIC
     Dosage: 300 MG/DAY
     Dates: start: 20081112, end: 20081203
  2. ALEVIATIN [Concomitant]
     Dosage: 4DF
     Route: 048
     Dates: start: 20081112
  3. MUCOSOLVAN [Concomitant]
     Dosage: 45MG
     Route: 048
     Dates: start: 20081112
  4. TAKEPRON [Concomitant]
     Dosage: 15 MG
     Route: 048
     Dates: start: 20081112
  5. MERISLON [Concomitant]
     Dosage: 18 MG
     Route: 048
     Dates: start: 20081112

REACTIONS (1)
  - C-REACTIVE PROTEIN INCREASED [None]
